FAERS Safety Report 6492178-3 (Version None)
Quarter: 2009Q4

REPORT INFORMATION
  Report Type: 
  Country: None (occurrence: None)
  Receive Date: 20091214
  Receipt Date: 20091210
  Transmission Date: 20100525
  Serious: Yes (Other)
  Sender: FDA-Public Use
  Company Number: JP-BIOGENIDEC-2009BI004557

PATIENT
  Age: 28 Year
  Sex: Male

DRUGS (3)
  1. AVONEX [Suspect]
     Indication: RELAPSING-REMITTING MULTIPLE SCLEROSIS
     Route: 030
     Dates: start: 20090401, end: 20090423
  2. AVONEX [Suspect]
     Route: 030
     Dates: start: 20090508, end: 20090529
  3. AVONEX [Suspect]
     Route: 030
     Dates: start: 20090203

REACTIONS (2)
  - MULTIPLE SCLEROSIS RELAPSE [None]
  - ROAD TRAFFIC ACCIDENT [None]
